FAERS Safety Report 7447647-6 (Version None)
Quarter: 2011Q2

REPORT INFORMATION
  Report Type: 
  Country: None (occurrence: None)
  Receive Date: 20110429
  Receipt Date: 20110103
  Transmission Date: 20111010
  Serious: No
  Sender: FDA-Public Use
  Company Number: US-ASTRAZENECA-2011SE00434

PATIENT
  Age: 746 Month
  Sex: Male

DRUGS (2)
  1. NEXIUM [Suspect]
     Route: 048
     Dates: start: 20060101, end: 20090901
  2. NEXIUM [Suspect]
     Route: 048
     Dates: start: 20091001

REACTIONS (2)
  - DRUG DOSE OMISSION [None]
  - GASTRITIS [None]
